FAERS Safety Report 5568334-5 (Version None)
Quarter: 2007Q4

REPORT INFORMATION
  Report Type: 
  Country: None (occurrence: None)
  Receive Date: 20071220
  Receipt Date: 20071214
  Transmission Date: 20080405
  Serious: Yes (Other)
  Sender: FDA-Public Use
  Company Number: CA-NOVOPROD-270313

PATIENT
  Age: 80 Year
  Sex: Male
  Weight: 78 kg

DRUGS (9)
  1. NOVOMIX PENFILL 3 ML [Suspect]
     Indication: INSULIN-REQUIRING TYPE II DIABETES MELLITUS
     Dosage: 70 IU, QD
     Dates: start: 20070828
  2. GLUCOPHAGE [Concomitant]
     Dosage: 200 MG, QD
     Route: 048
     Dates: start: 19961218
  3. PERINDOPRIL [Concomitant]
     Dosage: 8 MG, QD
     Route: 048
     Dates: start: 19990113
  4. DILTIAZEM [Concomitant]
     Dosage: 360 MG, QD
     Route: 048
     Dates: start: 19991109
  5. SIMVASTATIN [Concomitant]
     Dosage: 40 MG, QD
     Route: 048
     Dates: start: 20020409
  6. METOPROLOL SUCCINATE [Concomitant]
     Dosage: 100 MG, QD
     Route: 048
     Dates: start: 20070301
  7. CLOPIDOGREL [Concomitant]
     Dosage: 75 MG, QD
     Route: 048
     Dates: start: 20070301
  8. ALFUZOSIN HCL [Concomitant]
     Dosage: 10 MG, QD
     Route: 048
     Dates: start: 20070301
  9. ASPIRIN [Concomitant]
     Dosage: 325 MG, QD
     Route: 048
     Dates: start: 19980204

REACTIONS (1)
  - UNRESPONSIVE TO STIMULI [None]
